FAERS Safety Report 6440565-1 (Version None)
Quarter: 2009Q4

REPORT INFORMATION
  Report Type: 
  Country: None (occurrence: None)
  Receive Date: 20091113
  Receipt Date: 20091103
  Transmission Date: 20100525
  Serious: Yes (Death)
  Sender: FDA-Public Use
  Company Number: US-WATSON-2009-09070

PATIENT
  Age: 72 Year
  Sex: Male
  Weight: 136 kg

DRUGS (14)
  1. FENTANYL-50 [Suspect]
     Indication: NEUROPATHY PERIPHERAL
     Dosage: 1 PATCH, SINGLE (RIGHT CHEST)
     Route: 062
     Dates: start: 20091017, end: 20091020
  2. FENTANYL-50 [Suspect]
     Indication: PAIN IN EXTREMITY
  3. METOPROLOL (WATSON LABORATORIES) [Suspect]
     Indication: BLOOD PRESSURE
     Dosage: 50 MG, BID
     Route: 048
     Dates: start: 20090801, end: 20091019
  4. HYDROCODONE BITARTRATE AND ACETAMINOPHEN [Suspect]
     Indication: PAIN
     Dosage: 6 TABLET, DAILY
     Route: 048
     Dates: start: 20091017, end: 20091020
  5. AMBIEN [Suspect]
     Indication: INSOMNIA
     Dosage: 1 TABLET, PRN SLEEP
     Route: 048
     Dates: start: 20090101, end: 20091020
  6. BETAMETHASONE [Suspect]
     Indication: NEUROPATHY PERIPHERAL
     Dosage: APPLIED Q 4 HRS PRN (50MG STRENGTH LOTION)
     Route: 061
     Dates: start: 20091016, end: 20091016
  7. AMMONIUM LACTATE [Suspect]
     Indication: NEUROPATHY PERIPHERAL
     Dosage: APPLY BID TO SKIN
     Route: 061
     Dates: start: 20091019, end: 20091019
  8. UROXATRAL [Suspect]
     Indication: MICTURITION DISORDER
     Dosage: 1 TABLET, DAILY
     Route: 048
     Dates: start: 20090301, end: 20091019
  9. OXYCONTIN [Suspect]
     Indication: PAIN
     Dosage: 1 TABLET, BID TO TID PRN
     Route: 048
     Dates: start: 20030101, end: 20091016
  10. NOVALAC [Suspect]
     Indication: DIABETES MELLITUS
     Dosage: 15 G, TID
     Route: 058
     Dates: start: 20070101, end: 20091019
  11. LANTUS [Suspect]
     Indication: DIABETES MELLITUS
     Dosage: 25 G, DAILY
     Route: 058
     Dates: start: 20070101, end: 20091019
  12. WARFARIN SODIUM [Suspect]
     Indication: DRUG USE FOR UNKNOWN INDICATION
     Dosage: 6 MG ONE DAY THEN 7.5 MG THE NEXT DAY (ALTERNATING DAYS)
     Route: 048
     Dates: start: 20060101, end: 20091019
  13. CYMBALTA [Suspect]
     Indication: INSOMNIA
     Dosage: 60 MG, DAILY
     Route: 065
     Dates: end: 20091019
  14. DIPROLENT [Suspect]
     Indication: DRUG USE FOR UNKNOWN INDICATION
     Dosage: UNK
     Route: 065
     Dates: end: 20091019

REACTIONS (12)
  - ANEURYSM [None]
  - APNOEA [None]
  - BRAIN INJURY [None]
  - COAGULOPATHY [None]
  - COLD SWEAT [None]
  - DRUG INEFFECTIVE [None]
  - FALL [None]
  - FEELING ABNORMAL [None]
  - HAEMORRHAGIC STROKE [None]
  - HYPERTENSION [None]
  - INSOMNIA [None]
  - MALAISE [None]
